FAERS Safety Report 7037864-1 (Version None)
Quarter: 2010Q4

REPORT INFORMATION
  Report Type: 
  Country: None (occurrence: None)
  Receive Date: 20101011
  Receipt Date: 20101007
  Transmission Date: 20110411
  Serious: Yes (Death, Hospitalization, Other)
  Sender: FDA-Public Use
  Company Number: US-CELGENEUS-163-20785-10011926

PATIENT
  Age: 85 Year
  Sex: Female
  Weight: 93.8 kg

DRUGS (15)
  1. THALOMID [Suspect]
     Route: 048
     Dates: start: 20100105, end: 20100118
  2. MELPHALAN HYDROCHLORIDE [Suspect]
     Route: 048
     Dates: start: 20100105, end: 20100108
  3. PREDNISONE [Suspect]
     Route: 048
     Dates: start: 20100105, end: 20100108
  4. CHLORTHALIDONE [Suspect]
     Indication: PRODUCT USED FOR UNKNOWN INDICATION
     Route: 065
  5. MOXIFLOXACIN [Suspect]
     Indication: PRODUCT USED FOR UNKNOWN INDICATION
     Route: 065
     Dates: start: 20100116, end: 20100118
  6. ZOMETA [Suspect]
     Indication: PRODUCT USED FOR UNKNOWN INDICATION
     Route: 065
  7. CEFTRIAXONE [Concomitant]
     Indication: PRODUCT USED FOR UNKNOWN INDICATION
     Route: 065
     Dates: start: 20100116, end: 20100118
  8. ASPIRIN [Concomitant]
     Route: 048
     Dates: start: 20100105
  9. RANITIDINE [Concomitant]
     Indication: PRODUCT USED FOR UNKNOWN INDICATION
     Route: 065
  10. SIMVASTATIN [Concomitant]
     Indication: PRODUCT USED FOR UNKNOWN INDICATION
     Route: 065
  11. ANTIBIOTICS [Concomitant]
     Indication: URINARY TRACT INFECTION
     Route: 065
     Dates: start: 20100101
  12. FAMOTIDINE [Concomitant]
     Indication: PRODUCT USED FOR UNKNOWN INDICATION
     Route: 065
  13. FLONASE [Concomitant]
     Indication: PRODUCT USED FOR UNKNOWN INDICATION
     Route: 065
  14. MIRALAX [Concomitant]
     Indication: PRODUCT USED FOR UNKNOWN INDICATION
     Route: 065
  15. COLACE [Concomitant]
     Indication: PRODUCT USED FOR UNKNOWN INDICATION
     Route: 065

REACTIONS (4)
  - HYPOCALCAEMIA [None]
  - LEUKOCYTOCLASTIC VASCULITIS [None]
  - MULTIPLE MYELOMA [None]
  - RENAL FAILURE [None]
